FAERS Safety Report 7769491-2 (Version None)
Quarter: 2011Q3

REPORT INFORMATION
  Report Type: 
  Country: None (occurrence: None)
  Receive Date: 20110922
  Receipt Date: 20101222
  Transmission Date: 20111222
  Serious: No
  Sender: FDA-Public Use
  Company Number: US-ASTRAZENECA-2010SE60920

PATIENT
  Sex: Female

DRUGS (4)
  1. SEROQUEL [Suspect]
     Indication: BIPOLAR DISORDER
     Route: 048
  2. SEROQUEL [Suspect]
     Route: 048
  3. SEROQUEL [Suspect]
     Route: 048
     Dates: start: 20091001
  4. SEROQUEL [Suspect]
     Route: 048
     Dates: start: 20091001

REACTIONS (4)
  - INCORRECT DOSE ADMINISTERED [None]
  - DRUG WITHDRAWAL SYNDROME [None]
  - TREMOR [None]
  - PANIC ATTACK [None]
